FAERS Safety Report 7322627-X (Version None)
Quarter: 2011Q1

REPORT INFORMATION
  Report Type: 
  Country: None (occurrence: None)
  Receive Date: 20110301
  Receipt Date: 20110225
  Transmission Date: 20110831
  Serious: Yes (Other)
  Sender: FDA-Public Use
  Company Number: US-PFIZER INC-2011042844

PATIENT
  Sex: Male

DRUGS (1)
  1. NEURONTIN [Suspect]

REACTIONS (1)
  - SUICIDAL IDEATION [None]
